FAERS Safety Report 25789220 (Version 1)
Quarter: 2025Q3

REPORT INFORMATION
  Report Type: Spontaneous
  Country: US (occurrence: US)
  Receive Date: 20250911
  Receipt Date: 20250911
  Transmission Date: 20251020
  Serious: Yes (Other)
  Sender: AMGEN
  Company Number: US-AMGEN-USASP2025175524

PATIENT
  Age: 36 Year
  Sex: Male

DRUGS (21)
  1. RITUXIMAB [Suspect]
     Active Substance: RITUXIMAB
     Indication: T-cell lymphoma
     Route: 065
     Dates: start: 2020
  2. RITUXIMAB [Suspect]
     Active Substance: RITUXIMAB
     Indication: Diffuse large B-cell lymphoma
     Route: 065
     Dates: start: 2020
  3. METHOTREXATE [Concomitant]
     Active Substance: METHOTREXATE
     Indication: T-cell lymphoma
     Dates: start: 2020
  4. METHOTREXATE [Concomitant]
     Active Substance: METHOTREXATE
     Indication: Diffuse large B-cell lymphoma
     Dates: start: 2020
  5. VINCRISTINE [Concomitant]
     Active Substance: VINCRISTINE
     Indication: T-cell lymphoma
     Dates: start: 2020
  6. VINCRISTINE [Concomitant]
     Active Substance: VINCRISTINE
     Indication: Diffuse large B-cell lymphoma
  7. PROCARBAZINE [Concomitant]
     Active Substance: PROCARBAZINE
     Indication: T-cell lymphoma
     Dates: start: 2020
  8. PROCARBAZINE [Concomitant]
     Active Substance: PROCARBAZINE
     Indication: Diffuse large B-cell lymphoma
  9. CYTARABINE [Concomitant]
     Active Substance: CYTARABINE
     Indication: T-cell lymphoma
     Dates: start: 2020
  10. CYTARABINE [Concomitant]
     Active Substance: CYTARABINE
     Indication: Diffuse large B-cell lymphoma
     Dates: start: 2020
  11. THIOTEPA [Concomitant]
     Active Substance: THIOTEPA
     Indication: T-cell lymphoma
     Dates: start: 2020
  12. THIOTEPA [Concomitant]
     Active Substance: THIOTEPA
     Indication: Diffuse large B-cell lymphoma
  13. ETOPOSIDE [Concomitant]
     Active Substance: ETOPOSIDE
     Indication: T-cell lymphoma
  14. ETOPOSIDE [Concomitant]
     Active Substance: ETOPOSIDE
     Indication: Diffuse large B-cell lymphoma
     Dates: start: 2020
  15. ETOPOSIDE [Concomitant]
     Active Substance: ETOPOSIDE
     Indication: Haemophagocytic lymphohistiocytosis
  16. CISPLATIN [Concomitant]
     Active Substance: CISPLATIN
     Indication: T-cell lymphoma
     Dates: start: 2020
  17. CISPLATIN [Concomitant]
     Active Substance: CISPLATIN
     Indication: Diffuse large B-cell lymphoma
  18. GEMCITABINE [Concomitant]
     Active Substance: GEMCITABINE
     Indication: Bone marrow conditioning regimen
     Dates: start: 2020
  19. CLOFARABINE [Concomitant]
     Active Substance: CLOFARABINE
     Indication: Bone marrow conditioning regimen
     Dates: start: 2020
  20. BUSULFAN [Concomitant]
     Active Substance: BUSULFAN
     Indication: Bone marrow conditioning regimen
     Dates: start: 2020
  21. DEXAMETHASONE [Concomitant]
     Active Substance: DEXAMETHASONE
     Indication: Haemophagocytic lymphohistiocytosis

REACTIONS (5)
  - Guillain-Barre syndrome [Recovered/Resolved]
  - COVID-19 pneumonia [Recovered/Resolved]
  - Chronic graft versus host disease [Recovered/Resolved]
  - Arthritis bacterial [Recovered/Resolved]
  - Therapy partial responder [Unknown]

NARRATIVE: CASE EVENT DATE: 20200101
